FAERS Safety Report 4738114-9 (Version None)
Quarter: 2005Q3

REPORT INFORMATION
  Report Type: 
  Country: None (occurrence: None)
  Receive Date: 20050809
  Receipt Date: 20050311
  Transmission Date: 20060218
  Serious: Yes (Disabling)
  Sender: FDA-Public Use
  Company Number: 2005SE01516

PATIENT
  Age: 25259 Day
  Sex: Female
  Weight: 50 kg

DRUGS (4)
  1. BLOPRESS TABLETS 4 [Suspect]
     Indication: HYPERTENSION
     Route: 048
     Dates: start: 20011212, end: 20040707
  2. BASEN TABLETS 0.3 [Concomitant]
     Indication: DIABETES MELLITUS NON-INSULIN-DEPENDENT
     Route: 048
     Dates: start: 19920515
  3. GLIMICRON [Concomitant]
     Indication: DIABETES MELLITUS NON-INSULIN-DEPENDENT
     Route: 048
     Dates: start: 19920515, end: 20040707
  4. LIPOVAS [Concomitant]
     Indication: HYPERLIPIDAEMIA
     Route: 048
     Dates: start: 19951025, end: 20040707

REACTIONS (2)
  - IDIOPATHIC THROMBOCYTOPENIC PURPURA [None]
  - NORMOCHROMIC NORMOCYTIC ANAEMIA [None]
